FAERS Safety Report 9141105 (Version 1)
Quarter: 2013Q1

REPORT INFORMATION
  Report Type: Spontaneous
  Country: PL (occurrence: PL)
  Receive Date: 20130305
  Receipt Date: 20130305
  Transmission Date: 20140127
  Serious: Yes (Other)
  Sender: FDA-Public Use
  Company Number: PHHY2013PL008417

PATIENT
  Age: 79 Year
  Sex: Male

DRUGS (2)
  1. IMATINIB [Suspect]
     Indication: CHRONIC MYELOID LEUKAEMIA
     Dosage: 400 MG,PER DAY
  2. DASATINIB [Suspect]
     Indication: CHRONIC MYELOID LEUKAEMIA

REACTIONS (4)
  - Haematotoxicity [Recovered/Resolved]
  - Neutropenia [Recovered/Resolved]
  - Anaemia [Recovered/Resolved]
  - Thrombocytopenia [Recovered/Resolved]
